FAERS Safety Report 8112356-7 (Version None)
Quarter: 2012Q1

REPORT INFORMATION
  Report Type: 
  Country: None (occurrence: None)
  Receive Date: 20120203
  Receipt Date: 20120201
  Transmission Date: 20120608
  Serious: Yes (Life-Threatening, Hospitalization, Other)
  Sender: FDA-Public Use
  Company Number: GB-B.I. PHARMACEUTICALS,INC./RIDGEFIELD-2012-UK-00059UK

PATIENT
  Sex: Male
  Weight: 72 kg

DRUGS (12)
  1. ACETAMINOPHEN [Concomitant]
     Indication: PAIN
     Dosage: 1G PRN
     Route: 048
  2. BECLOMETHASONE INHALER [Concomitant]
  3. LACIDIPINE [Concomitant]
     Indication: HYPERTENSION
     Route: 048
  4. PRADAXA [Suspect]
     Indication: THROMBOSIS PROPHYLAXIS
     Dosage: 150 MG
     Route: 048
     Dates: start: 20110911, end: 20110925
  5. ACARBOSE [Concomitant]
     Indication: CARDIAC DISORDER
     Route: 048
  6. GLIMEPIRIDE [Concomitant]
     Route: 048
  7. LANSOPRAZOLE [Concomitant]
     Indication: DYSPEPSIA
     Route: 048
  8. METFORMIN HCL [Concomitant]
     Indication: DIABETES MELLITUS
     Route: 048
  9. ASPIRIN [Suspect]
     Indication: ESSENTIAL THROMBOCYTHAEMIA
     Dosage: 75 MG
     Route: 048
     Dates: end: 20110925
  10. PIOGLITAZONE [Concomitant]
  11. HYDROXYUREA [Concomitant]
     Indication: ESSENTIAL THROMBOCYTHAEMIA
     Dosage: 500 MG
     Route: 048
  12. SIMVASTATIN [Concomitant]
     Indication: BLOOD CHOLESTEROL INCREASED
     Route: 048

REACTIONS (3)
  - SUBDURAL HAEMATOMA [None]
  - SKULL FRACTURE [None]
  - HEAD INJURY [None]
